FAERS Safety Report 5706338-X (Version None)
Quarter: 2008Q2

REPORT INFORMATION
  Report Type: 
  Country: None (occurrence: None)
  Receive Date: 20080409
  Receipt Date: 20071221
  Transmission Date: 20081010
  Serious: Yes (Life-Threatening, Hospitalization)
  Sender: FDA-Public Use
  Company Number: 172

PATIENT
  Sex: Male

DRUGS (1)
  1. FAZACLO ODT [Suspect]
     Dosage: 325 MG PO DAILY
     Route: 048
     Dates: start: 20071030, end: 20071221

REACTIONS (1)
  - AGRANULOCYTOSIS [None]
